FAERS Safety Report 22353144 (Version 1)
Quarter: 2023Q2

REPORT INFORMATION
  Report Type: Report from Study
  Country: US (occurrence: US)
  Receive Date: 20230523
  Receipt Date: 20230523
  Transmission Date: 20230721
  Serious: Yes (Hospitalization)
  Sender: FDA-Public Use
  Company Number: US-JNJFOC-20230539879

PATIENT
  Age: 2 Decade
  Sex: Female
  Weight: 55 kg

DRUGS (12)
  1. INFLIXIMAB [Suspect]
     Active Substance: INFLIXIMAB
     Indication: Inflammatory bowel disease
     Route: 041
     Dates: start: 20140428, end: 20161205
  2. PREDNISONE [Suspect]
     Active Substance: PREDNISONE
     Indication: Product used for unknown indication
     Route: 065
  3. TACROLIMUS [Suspect]
     Active Substance: TACROLIMUS
     Indication: Product used for unknown indication
     Route: 065
  4. CELLCEPT [Suspect]
     Active Substance: MYCOPHENOLATE MOFETIL
     Indication: Product used for unknown indication
     Route: 065
  5. ENTYVIO [Concomitant]
     Active Substance: VEDOLIZUMAB
     Dates: start: 20180412, end: 20211027
  6. VANCOMYCIN [Concomitant]
     Active Substance: VANCOMYCIN
  7. PRILOSEC [Concomitant]
     Active Substance: OMEPRAZOLE MAGNESIUM
  8. ACTIGALL [Concomitant]
     Active Substance: URSODIOL
  9. AZATHIOPRINE [Concomitant]
     Active Substance: AZATHIOPRINE
  10. PROZAC [Concomitant]
     Active Substance: FLUOXETINE HYDROCHLORIDE
  11. FERROUS SULFATE [Concomitant]
     Active Substance: FERROUS SULFATE
  12. HUMIRA [Concomitant]
     Active Substance: ADALIMUMAB
     Dates: start: 20161227

REACTIONS (1)
  - Liver transplant rejection [Recovered/Resolved]

NARRATIVE: CASE EVENT DATE: 20211222
